FAERS Safety Report 6162320-2 (Version None)
Quarter: 2009Q2

REPORT INFORMATION
  Report Type: 
  Country: None (occurrence: None)
  Receive Date: 20090421
  Receipt Date: 20090413
  Transmission Date: 20091009
  Serious: Yes (Disabling, Other)
  Sender: FDA-Public Use
  Company Number: US-PFIZER INC-2008058159

PATIENT
  Sex: Female
  Weight: 84 kg

DRUGS (7)
  1. NORVASC [Suspect]
     Indication: HYPERTENSION
     Dates: start: 20070501
  2. COZAAR [Suspect]
     Indication: HYPERTENSION
     Dates: start: 20070501
  3. BENICAR [Suspect]
  4. ASPIRIN [Concomitant]
  5. POTASSIUM CHLORIDE [Concomitant]
  6. CRESTOR [Concomitant]
  7. INDAPAMIDE [Concomitant]

REACTIONS (18)
  - ASTHENIA [None]
  - BLOOD GLUCOSE ABNORMAL [None]
  - BLOOD GLUCOSE INCREASED [None]
  - CHEST PAIN [None]
  - DEHYDRATION [None]
  - DRUG INTERACTION [None]
  - DYSPEPSIA [None]
  - DYSPNOEA [None]
  - FEELING ABNORMAL [None]
  - HYPERHIDROSIS [None]
  - HYPERTENSION [None]
  - MIGRAINE [None]
  - PAIN [None]
  - POLLAKIURIA [None]
  - RENAL PAIN [None]
  - SCREAMING [None]
  - UNEVALUABLE EVENT [None]
  - WEIGHT INCREASED [None]
